FAERS Safety Report 8479985-2 (Version None)
Quarter: 2012Q2

REPORT INFORMATION
  Report Type: 
  Country: None (occurrence: None)
  Receive Date: 20120615
  Receipt Date: 20120611
  Transmission Date: 20120825
  Serious: Yes (Life-Threatening)
  Sender: FDA-Public Use
  Company Number: 2012SP031681

PATIENT
  Age: 52 Year
  Sex: Female
  Weight: 86.8185 kg

DRUGS (1)
  1. SAPHRIS [Suspect]
     Indication: SCHIZOPHRENIA
     Dosage: 5 MG;QD;SL
     Route: 060
     Dates: start: 20120304

REACTIONS (7)
  - MIDDLE INSOMNIA [None]
  - NAUSEA [None]
  - PAIN IN JAW [None]
  - EMBOLIC STROKE [None]
  - MYOCARDIAL INFARCTION [None]
  - BACK PAIN [None]
  - DYSPNOEA [None]
